FAERS Safety Report 8960651 (Version 1)
Quarter: 2012Q4

REPORT INFORMATION
  Report Type: 
  Country: EG (occurrence: EG)
  Receive Date: 20121213
  Receipt Date: 20121213
  Transmission Date: 20130627
  Serious: Yes (Hospitalization, Other)
  Sender: FDA-Public Use
  Company Number: EG-ACTELION-A-CH2012-75921

PATIENT
  Age: 7 Year
  Sex: Female

DRUGS (6)
  1. TRACLEER [Suspect]
     Indication: PULMONARY ARTERIAL HYPERTENSION
     Dosage: 32 mg, qd
     Route: 048
  2. SILDENAFIL [Concomitant]
     Dosage: 5 mg, tid
  3. SILDENAFIL [Concomitant]
     Dosage: 20 UNK, UNK
  4. FUROSEMIDE [Concomitant]
     Dosage: 10 mg, tid
  5. ASPIRIN [Concomitant]
  6. CAPTOPRIL [Concomitant]
     Dosage: 6.25 mg, tid

REACTIONS (9)
  - Thrombocytopenia [Recovering/Resolving]
  - Splenectomy [Recovering/Resolving]
  - Biopsy bone marrow [Recovering/Resolving]
  - Balloon atrial septostomy [Unknown]
  - Ventricular septal defect repair [Unknown]
  - Polycythaemia [None]
  - Platelet morphology abnormal [None]
  - Treatment failure [None]
  - Megakaryocyte destruction increased [None]
